FAERS Safety Report 24139424 (Version 3)
Quarter: 2024Q4

REPORT INFORMATION
  Report Type: Spontaneous
  Country: US (occurrence: US)
  Receive Date: 20240726
  Receipt Date: 20241226
  Transmission Date: 20250115
  Serious: No
  Sender: SANOFI AVENTIS
  Company Number: US-SA-SAC20240722000328

PATIENT
  Age: 47 Year
  Sex: Female
  Weight: 64.8 kg

DRUGS (1)
  1. REZUROCK [Suspect]
     Active Substance: BELUMOSUDIL
     Indication: Chronic graft versus host disease
     Dosage: 200 MG, QD
     Route: 048
     Dates: start: 20240330

REACTIONS (8)
  - Abdominal discomfort [Unknown]
  - Dry eye [Unknown]
  - Diarrhoea [Unknown]
  - Upper respiratory tract infection [Recovering/Resolving]
  - Productive cough [Recovering/Resolving]
  - Cough [Recovering/Resolving]
  - Oropharyngeal pain [Recovering/Resolving]
  - Respiratory tract congestion [Recovering/Resolving]

NARRATIVE: CASE EVENT DATE: 20241214
